FAERS Safety Report 19957122 (Version 1)
Quarter: 2021Q4

REPORT INFORMATION
  Report Type: Spontaneous
  Country: US (occurrence: US)
  Receive Date: 20211015
  Receipt Date: 20211015
  Transmission Date: 20220303
  Serious: No
  Sender: FDA-Public Use
  Company Number: US-GLAXOSMITHKLINE-USCH2021063704

PATIENT

DRUGS (5)
  1. EMERGEN-C [Suspect]
     Active Substance: VITAMINS
     Indication: Illness
     Dosage: UNK
  2. ADVIL [Suspect]
     Active Substance: IBUPROFEN
     Indication: Pain
     Dosage: UNK
  3. ADVIL [Suspect]
     Active Substance: IBUPROFEN
     Indication: Muscle spasms
  4. ADVIL [Suspect]
     Active Substance: IBUPROFEN
     Indication: Headache
  5. ADVIL [Suspect]
     Active Substance: IBUPROFEN
     Indication: Post-traumatic pain

REACTIONS (3)
  - Product used for unknown indication [Unknown]
  - Drug ineffective for unapproved indication [Unknown]
  - Drug ineffective [Unknown]
